FAERS Safety Report 12891381 (Version 2)
Quarter: 2016Q4

REPORT INFORMATION
  Report Type: Report from Study
  Country: US (occurrence: US)
  Receive Date: 20161028
  Receipt Date: 20161122
  Transmission Date: 20170207
  Serious: Yes (Disabling)
  Sender: FDA-Public Use
  Company Number: US-AMGEN-USASL2016146884

PATIENT
  Age: 69 Year
  Sex: Female
  Weight: 54.42 kg

DRUGS (1)
  1. REPATHA [Suspect]
     Active Substance: EVOLOCUMAB
     Indication: HYPERLIPIDAEMIA
     Dosage: 140 MG, Q2WK
     Route: 058
     Dates: start: 20151203

REACTIONS (4)
  - Arthralgia [Recovered/Resolved]
  - Bronchitis [Not Recovered/Not Resolved]
  - Pain in extremity [Not Recovered/Not Resolved]
  - Upper respiratory tract infection [Recovered/Resolved]

NARRATIVE: CASE EVENT DATE: 20160527
